FAERS Safety Report 9844049 (Version 2)
Quarter: 2014Q1

REPORT INFORMATION
  Report Type: Report from Study
  Country: DE (occurrence: DE)
  Receive Date: 20140126
  Receipt Date: 20140206
  Transmission Date: 20141002
  Serious: Yes (Hospitalization)
  Sender: FDA-Public Use
  Company Number: DE-ROCHE-1337556

PATIENT
  Age: 74 Year
  Sex: Female

DRUGS (15)
  1. RITUXIMAB [Suspect]
     Indication: RHEUMATOID ARTHRITIS
     Route: 065
     Dates: start: 20110106
  2. RITUXIMAB [Suspect]
     Route: 065
     Dates: start: 20110714
  3. RITUXIMAB [Suspect]
     Route: 065
     Dates: start: 20120127
  4. RITUXIMAB [Suspect]
     Route: 065
     Dates: start: 20120713
  5. RITUXIMAB [Suspect]
     Route: 065
     Dates: start: 20130118
  6. SIMVA [Concomitant]
     Route: 065
  7. FUROSEMIDE [Concomitant]
     Route: 065
  8. L-THYROX [Concomitant]
  9. PIRACETAM [Concomitant]
     Route: 065
  10. VALORON (GERMANY) [Concomitant]
     Route: 065
  11. PANTOZOL (GERMANY) [Concomitant]
     Route: 065
  12. ASS (GERMANY) [Concomitant]
  13. SPIRIVA [Concomitant]
     Route: 065
  14. SYMBICORT [Concomitant]
     Route: 065
  15. ARIXTRA [Concomitant]
     Route: 058

REACTIONS (2)
  - Meniscus injury [Recovered/Resolved]
  - Chondromalacia [Recovered/Resolved]
